FAERS Safety Report 14988730 (Version 2)
Quarter: 2018Q2

REPORT INFORMATION
  Report Type: Report from Study
  Country: CH (occurrence: CH)
  Receive Date: 20180608
  Receipt Date: 20180619
  Transmission Date: 20180711
  Serious: Yes (Death, Life-Threatening, Hospitalization)
  Sender: FDA-Public Use
  Company Number: CH-ELI_LILLY_AND_COMPANY-CH201711012092

PATIENT
  Age: 66 Year
  Sex: Male
  Weight: 78 kg

DRUGS (2)
  1. PACLITAXEL. [Concomitant]
     Active Substance: PACLITAXEL
     Indication: OESOPHAGEAL ADENOCARCINOMA
     Dosage: UNK, UNKNOWN
     Dates: start: 20170817, end: 20171127
  2. RAMUCIRUMAB [Suspect]
     Active Substance: RAMUCIRUMAB
     Indication: OESOPHAGEAL ADENOCARCINOMA
     Dosage: 600 MG, EVERY 14 DAYS
     Route: 042
     Dates: start: 20170817, end: 20171110

REACTIONS (1)
  - Oesophageal perforation [Fatal]

NARRATIVE: CASE EVENT DATE: 20171127
